FAERS Safety Report 4317374-2 (Version None)
Quarter: 2004Q1

REPORT INFORMATION
  Report Type: 
  Country: None (occurrence: None)
  Receive Date: 20040312
  Receipt Date: 20040227
  Transmission Date: 20041129
  Serious: Yes (Life-Threatening, Hospitalization)
  Sender: FDA-Public Use
  Company Number: 2004AP01148

PATIENT
  Age: 73 Year
  Sex: Female

DRUGS (14)
  1. IRESSA [Suspect]
     Indication: NON-SMALL CELL LUNG CANCER
     Dosage: 250 MG DAILY PO
     Route: 048
     Dates: start: 20031030, end: 20031115
  2. SOSEGON [Concomitant]
  3. LORCAM [Concomitant]
  4. TERNELIN [Concomitant]
  5. MARZULENE S [Concomitant]
  6. SOLITA-T 3G [Concomitant]
  7. AMINOFLUID [Concomitant]
  8. MS CONTIN [Concomitant]
  9. AMINOTRIPA 1 [Concomitant]
  10. PURSENNID [Concomitant]
  11. GASTER [Concomitant]
  12. AREDIA [Concomitant]
  13. LOPEMIN [Concomitant]
  14. SULPERAZON [Concomitant]

REACTIONS (5)
  - DIARRHOEA [None]
  - HEPATIC FUNCTION ABNORMAL [None]
  - INTERSTITIAL LUNG DISEASE [None]
  - RENAL FUNCTION TEST ABNORMAL [None]
  - STOMATITIS [None]
